FAERS Safety Report 25990847 (Version 1)
Quarter: 2025Q4

REPORT INFORMATION
  Report Type: Spontaneous
  Country: US (occurrence: None)
  Receive Date: 20251103
  Receipt Date: 20251103
  Transmission Date: 20260118
  Serious: Yes (Other)
  Sender: FDA-CTU
  Company Number: None

PATIENT
  Sex: Male

DRUGS (3)
  1. VYNDAQEL [Suspect]
     Active Substance: TAFAMIDIS MEGLUMINE
     Indication: Amyloidosis
     Dosage: TAKE 4 CAPSULES BY MOUTH ONCE DAILY?
     Route: 048
     Dates: start: 20250120
  2. ISOSORB MONO TAB 30MG ER [Concomitant]
  3. TORSEMIDE TAB 20MG [Concomitant]

REACTIONS (1)
  - Animal bite [None]
